FAERS Safety Report 25224469 (Version 11)
Quarter: 2025Q4

REPORT INFORMATION
  Report Type: Report from Study
  Country: JP (occurrence: JP)
  Receive Date: 20250422
  Receipt Date: 20251225
  Transmission Date: 20260118
  Serious: Yes (Other)
  Sender: NOVARTIS
  Company Number: JP-002147023-NVSJ2025JP004465

PATIENT
  Age: 12 Year
  Sex: Male

DRUGS (10)
  1. PROMACTA [Suspect]
     Active Substance: ELTROMBOPAG OLAMINE
     Indication: Aplastic anaemia
     Dosage: 75 MG
     Route: 048
     Dates: start: 20241009, end: 20250406
  2. PROMACTA [Suspect]
     Active Substance: ELTROMBOPAG OLAMINE
     Dosage: 37.5 MG
     Route: 048
     Dates: start: 20250407, end: 20250506
  3. PROMACTA [Suspect]
     Active Substance: ELTROMBOPAG OLAMINE
     Dosage: 25 MG
     Route: 048
     Dates: start: 20250507, end: 20250930
  4. PROMACTA [Suspect]
     Active Substance: ELTROMBOPAG OLAMINE
     Dosage: 12.5 MG
     Route: 048
     Dates: start: 20251001
  5. NEORAL [Suspect]
     Active Substance: CYCLOSPORINE
     Indication: Aplastic anaemia
     Dosage: UNK
     Route: 048
     Dates: start: 20241009
  6. ATGAM [Concomitant]
     Active Substance: EQUINE THYMOCYTE IMMUNE GLOBULIN
     Indication: Aplastic anaemia
     Dosage: UNK
     Route: 065
     Dates: start: 20241009, end: 20241012
  7. PREDONINE [Concomitant]
     Active Substance: PREDNISOLONE
     Indication: Aplastic anaemia
     Dosage: UNK
     Route: 065
     Dates: start: 20241023, end: 20241105
  8. ITRACONAZOLE [Concomitant]
     Active Substance: ITRACONAZOLE
     Indication: Aplastic anaemia
     Dosage: UNK
     Route: 065
     Dates: start: 20241018
  9. SULFAMETHOXAZOLE\TRIMETHOPRIM [Concomitant]
     Active Substance: SULFAMETHOXAZOLE\TRIMETHOPRIM
     Indication: Aplastic anaemia
     Dosage: UNK
     Route: 065
     Dates: start: 20241018
  10. ACYCLOVIR [Concomitant]
     Active Substance: ACYCLOVIR
     Indication: Aplastic anaemia
     Dosage: UNK
     Route: 065
     Dates: start: 20241009

REACTIONS (4)
  - Blood bilirubin increased [Recovering/Resolving]
  - Neutrophil count decreased [Unknown]
  - COVID-19 [Recovered/Resolved]
  - Pyrexia [Recovered/Resolved]

NARRATIVE: CASE EVENT DATE: 20241015
